FAERS Safety Report 8465552-3 (Version None)
Quarter: 2012Q2

REPORT INFORMATION
  Report Type: 
  Country: None (occurrence: None)
  Receive Date: 20120626
  Receipt Date: 20120618
  Transmission Date: 20120825
  Serious: Yes (Hospitalization)
  Sender: FDA-Public Use
  Company Number: US-UCBSA-021494

PATIENT
  Age: 26 Year
  Sex: Male
  Weight: 46 kg

DRUGS (13)
  1. CIMZIA [Suspect]
     Indication: CROHN'S DISEASE
     Route: 058
     Dates: start: 20100122
  2. PREDNISONE [Concomitant]
     Indication: CROHN'S DISEASE
     Dates: start: 20020701, end: 20020901
  3. CIPROFLOXACIN [Concomitant]
  4. LOPERAMIDE [Concomitant]
     Indication: CROHN'S DISEASE
  5. FLAGYL [Concomitant]
     Dates: start: 20100921, end: 20100927
  6. PEPCID [Concomitant]
  7. PREDNISONE [Concomitant]
     Dates: start: 20090601, end: 20090811
  8. IBUPROFEN [Concomitant]
     Indication: CROHN'S DISEASE
  9. VANCOMYCIN [Concomitant]
  10. PREDNISONE [Concomitant]
     Dosage: DAILY FOR 1 WEEK
     Dates: start: 20100420, end: 20110715
  11. HEPARIN [Concomitant]
     Route: 058
  12. ZOSYN [Concomitant]
     Route: 042
     Dates: start: 20100921, end: 20101029
  13. CYMBALTA [Concomitant]

REACTIONS (2)
  - CROHN'S DISEASE [None]
  - ABDOMINAL ABSCESS [None]
